FAERS Safety Report 16951483 (Version 2)
Quarter: 2019Q4

REPORT INFORMATION
  Report Type: Spontaneous
  Country: CN (occurrence: CN)
  Receive Date: 20191023
  Receipt Date: 20191028
  Transmission Date: 20200122
  Serious: Yes (Other)
  Sender: FDA-Public Use
  Company Number: CN-PFIZER INC-2019457337

PATIENT
  Age: 69 Year
  Sex: Male

DRUGS (2)
  1. AMLODIPINE BESILATE [Suspect]
     Active Substance: AMLODIPINE BESYLATE
     Dosage: 5 MG, 1X/DAY
     Route: 048
  2. YA SHI DA [PERINDOPRIL] [Suspect]
     Active Substance: PERINDOPRIL
     Dosage: 4 MG, 1X/DAY
     Route: 048

REACTIONS (4)
  - Diabetic retinopathy [Unknown]
  - Disease progression [Unknown]
  - Diabetic nephropathy [Unknown]
  - Diabetic neuropathy [Unknown]
